FAERS Safety Report 4579958-6 (Version None)
Quarter: 2005Q1

REPORT INFORMATION
  Report Type: 
  Country: None (occurrence: None)
  Receive Date: 20050210
  Receipt Date: 20050128
  Transmission Date: 20050727
  Serious: Yes (Life-Threatening, Other)
  Sender: FDA-Public Use
  Company Number: HQWYE659317JAN05

PATIENT
  Age: 80 Year
  Sex: Female

DRUGS (10)
  1. MINOMYCIN (MINOCYCLINE, INJECTION) [Suspect]
     Indication: PNEUMONIA
     Dosage: 200 MG DAILY
     Route: 041
     Dates: start: 20041222, end: 20050103
  2. CEFTRIAXONE [Concomitant]
  3. GASMOTIN (MOSAPRIDE CITRATE) [Concomitant]
  4. SELBEX (TEPRENONE) [Concomitant]
  5. AMANTADINE HCL [Concomitant]
  6. ALFACALCIDOL (ALFACALCIDOL) [Concomitant]
  7. ESTRIEL (ESTRIOL) [Concomitant]
  8. YODEL (SENNA) [Concomitant]
  9. FAMOTIDINE [Concomitant]
  10. HYDROXYZINE [Concomitant]

REACTIONS (3)
  - CONDITION AGGRAVATED [None]
  - INTERSTITIAL LUNG DISEASE [None]
  - RENAL FAILURE [None]
